FAERS Safety Report 9778031 (Version 2)
Quarter: 2013Q4

REPORT INFORMATION
  Report Type: Spontaneous
  Country: GB (occurrence: GB)
  Receive Date: 20131223
  Receipt Date: 20131223
  Transmission Date: 20140711
  Serious: Yes (Other)
  Sender: FDA-Public Use
  Company Number: GB-ACCORD-020587

PATIENT
  Age: 64 Year
  Sex: Male

DRUGS (5)
  1. PARACETAMOL [Concomitant]
     Indication: ANALGESIC THERAPY
     Dosage: PARACETAMOL BRISTOL LABS.??DAILY DOSE: QDSPRN
     Route: 048
     Dates: start: 20131113
  2. DABIGATRAN [Concomitant]
     Indication: THROMBOSIS PROPHYLAXIS
     Route: 048
     Dates: start: 20131113
  3. CELECOXIB [Concomitant]
     Indication: ANALGESIC THERAPY
     Dosage: CELECOXIB PFIZER
     Route: 048
     Dates: start: 20131113
  4. TRAMADOL [Suspect]
     Indication: POSTOPERATIVE ANALGESIA
     Dosage: 50-100-MG QDSPRN
     Route: 048
     Dates: start: 20131115
  5. OMEPRAZOLE [Concomitant]
     Dosage: OMEPRAZOLE JENSEN
     Route: 048
     Dates: start: 20131113

REACTIONS (2)
  - Urinary retention [Recovered/Resolved]
  - Prostatomegaly [Unknown]
